FAERS Safety Report 8287850-9 (Version None)
Quarter: 2012Q2

REPORT INFORMATION
  Report Type: 
  Country: None (occurrence: None)
  Receive Date: 20120416
  Receipt Date: 20120410
  Transmission Date: 20120825
  Serious: Yes (Hospitalization)
  Sender: FDA-Public Use
  Company Number: US-ALEXION-A201200538

PATIENT
  Sex: Male

DRUGS (3)
  1. SODIUM CHLORIDE [Concomitant]
     Dosage: UNK
     Route: 042
  2. SOLIRIS [Suspect]
     Indication: PAROXYSMAL NOCTURNAL HAEMOGLOBINURIA
     Dosage: 600 MG, QW
     Route: 042
     Dates: start: 20120131, end: 20120201
  3. SOLIRIS [Suspect]
     Dosage: 900 MG, Q2W
     Route: 042
     Dates: start: 20120228

REACTIONS (2)
  - PULMONARY OEDEMA [None]
  - PLEURAL EFFUSION [None]
